FAERS Safety Report 5243682-7 (Version None)
Quarter: 2007Q1

REPORT INFORMATION
  Report Type: 
  Country: None (occurrence: None)
  Receive Date: 20070220
  Receipt Date: 20070220
  Transmission Date: 20070707
  Serious: Yes (Other)
  Sender: FDA-Public Use
  Company Number: None

PATIENT
  Age: 44 Year
  Sex: Male
  Weight: 86.637 kg

DRUGS (1)
  1. MODAFINIL [Suspect]
     Indication: DEPRESSED LEVEL OF CONSCIOUSNESS
     Dosage: 200 MG TAB 2 TABS DAILY PO
     Route: 048
     Dates: start: 20070102, end: 20070218

REACTIONS (7)
  - ABDOMINAL PAIN UPPER [None]
  - BRONCHITIS [None]
  - CHILLS [None]
  - CONDITION AGGRAVATED [None]
  - DIARRHOEA [None]
  - NAUSEA [None]
  - SINUS DISORDER [None]
